FAERS Safety Report 18087250 (Version 1)
Quarter: 2020Q3

REPORT INFORMATION
  Report Type: Spontaneous
  Country: KR (occurrence: KR)
  Receive Date: 20200729
  Receipt Date: 20200729
  Transmission Date: 20201103
  Serious: Yes (Other)
  Sender: FDA-Public Use
  Company Number: KR-ASTRAZENECA-2020SE93009

PATIENT
  Age: 66 Year
  Sex: Female

DRUGS (7)
  1. LYNPARZA [Suspect]
     Active Substance: OLAPARIB
     Indication: OVARIAN CANCER
     Route: 048
     Dates: start: 20200605
  2. AVASTIN [Concomitant]
     Active Substance: BEVACIZUMAB
     Dosage: DOSE AND FREQUENCY UNKNOWN
     Route: 065
     Dates: start: 20190123
  3. TAXOL?CARBO [Concomitant]
     Dosage: DOSE AND FREQUENCY UNKNKOWN, THREE TIMES
     Route: 065
     Dates: start: 20171127, end: 20180111
  4. LYNPARZA [Suspect]
     Active Substance: OLAPARIB
     Indication: OVARIAN CANCER
     Route: 048
     Dates: end: 20200717
  5. TAXOL?CARBO [Concomitant]
     Dosage: DOSE AND FREQUENCY UNKNKOWN, SIX TIMES
     Route: 065
     Dates: start: 20180301, end: 20180614
  6. DOXIL [Concomitant]
     Active Substance: DOXORUBICIN HYDROCHLORIDE
     Dosage: DOSE AND FREQUENCY UNKNOWN
     Route: 065
     Dates: start: 20190123
  7. DOXIL [Concomitant]
     Active Substance: DOXORUBICIN HYDROCHLORIDE
     Dosage: DOSE AND FREQUENCY UNKNOWN
     Route: 065

REACTIONS (4)
  - Abdominal discomfort [Unknown]
  - Dyspepsia [Unknown]
  - Acute kidney injury [Unknown]
  - Nephropathy toxic [Unknown]

NARRATIVE: CASE EVENT DATE: 202006
